FAERS Safety Report 22913344 (Version 3)
Quarter: 2023Q4

REPORT INFORMATION
  Report Type: Report from Study
  Country: CA (occurrence: CA)
  Receive Date: 20230906
  Receipt Date: 20231027
  Transmission Date: 20240110
  Serious: Yes (Other)
  Sender: FDA-Public Use
  Company Number: CA-TAIHOP-2023-007343

PATIENT
  Age: 58 Year
  Sex: Male

DRUGS (1)
  1. LONSURF [Suspect]
     Active Substance: TIPIRACIL HYDROCHLORIDE\TRIFLURIDINE
     Indication: Colorectal cancer metastatic
     Dosage: FORM STRENGTH UNKNOWN,?CYCLE UNKNOWN
     Route: 048
     Dates: start: 20230731

REACTIONS (1)
  - Jaundice [Unknown]
